FAERS Safety Report 10308641 (Version 2)
Quarter: 2014Q3

REPORT INFORMATION
  Report Type: Spontaneous
  Country: US (occurrence: US)
  Receive Date: 20140716
  Receipt Date: 20140805
  Transmission Date: 20150326
  Serious: No
  Sender: FDA-Public Use
  Company Number: US-TEVA-494146USA

PATIENT
  Sex: Female

DRUGS (2)
  1. COPAXONE [Suspect]
     Active Substance: GLATIRAMER ACETATE
     Indication: MULTIPLE SCLEROSIS
     Dates: start: 2014
  2. RESTIFLOW [Concomitant]
     Indication: URINARY TRACT INFECTION
     Route: 065

REACTIONS (6)
  - Exostosis [Not Recovered/Not Resolved]
  - Faecal incontinence [Recovered/Resolved]
  - Muscular weakness [Not Recovered/Not Resolved]
  - Diarrhoea [Recovered/Resolved]
  - Back disorder [Not Recovered/Not Resolved]
  - Constipation [Unknown]
